FAERS Safety Report 8333515-4 (Version None)
Quarter: 2012Q2

REPORT INFORMATION
  Report Type: 
  Country: None (occurrence: None)
  Receive Date: 20120503
  Receipt Date: 20101111
  Transmission Date: 20120825
  Serious: No
  Sender: FDA-Public Use
  Company Number: US-TEVA-2010005903

PATIENT
  Age: 24 Year
  Sex: Female

DRUGS (2)
  1. CYMBALTA [Concomitant]
  2. NUVIGIL [Suspect]
     Indication: NARCOLEPSY
     Route: 048

REACTIONS (2)
  - INTENTIONAL DRUG MISUSE [None]
  - ANGER [None]
